FAERS Safety Report 14280007 (Version 4)
Quarter: 2018Q4

REPORT INFORMATION
  Report Type: Spontaneous
  Country: JP (occurrence: JP)
  Receive Date: 20171212
  Receipt Date: 20181206
  Transmission Date: 20190204
  Serious: Yes (Hospitalization, Other)
  Sender: FDA-Public Use
  Company Number: JP-BRISTOL-MYERS SQUIBB COMPANY-BMS-2017-112058

PATIENT
  Age: 80 Year
  Sex: Male

DRUGS (1)
  1. OPDIVO [Suspect]
     Active Substance: NIVOLUMAB
     Indication: NON-SMALL CELL LUNG CANCER RECURRENT
     Dosage: 3 MG/KG, UNK
     Route: 041
     Dates: start: 20160726, end: 20160906

REACTIONS (12)
  - Gait disturbance [Unknown]
  - Stomatitis [Recovered/Resolved]
  - Pruritus [Not Recovered/Not Resolved]
  - Sudden hearing loss [Unknown]
  - Blood thyroid stimulating hormone decreased [Recovered/Resolved]
  - Eosinophil count increased [Not Recovered/Not Resolved]
  - Vertigo [Unknown]
  - Skin exfoliation [Recovered/Resolved]
  - Vision blurred [Recovered/Resolved]
  - Hypoaesthesia [Recovered/Resolved]
  - Cerebral haemorrhage [Unknown]
  - Urinary bladder haemorrhage [Unknown]

NARRATIVE: CASE EVENT DATE: 20171202
